FAERS Safety Report 9149336 (Version 1)
Quarter: 2013Q1

REPORT INFORMATION
  Report Type: Spontaneous
  Country: US (occurrence: US)
  Receive Date: 20130308
  Receipt Date: 20130308
  Transmission Date: 20140127
  Serious: No
  Sender: FDA-Public Use
  Company Number: US-PFIZER INC-2013079592

PATIENT
  Age: 62 Year
  Sex: Female
  Weight: 62.59 kg

DRUGS (1)
  1. LYRICA [Suspect]
     Indication: NERVE INJURY
     Dosage: UNK
     Dates: start: 201301

REACTIONS (1)
  - Muscle twitching [Unknown]
